FAERS Safety Report 4514910-8 (Version None)
Quarter: 2004Q4

REPORT INFORMATION
  Report Type: 
  Country: None (occurrence: None)
  Receive Date: 20041129
  Receipt Date: 20041129
  Transmission Date: 20050328
  Serious: No
  Sender: FDA-Public Use
  Company Number: None

PATIENT
  Age: 35 Year
  Sex: Female
  Weight: 74.3899 kg

DRUGS (2)
  1. PAXIL [Suspect]
     Indication: MIGRAINE PROPHYLAXIS
     Dosage: 10 MG DAILY ORAL
     Route: 048
     Dates: start: 20010510, end: 20041123
  2. PAXIL CR [Suspect]
     Dosage: 25  MG DAILY ORAL
     Route: 048

REACTIONS (5)
  - CRYING [None]
  - FATIGUE [None]
  - FEELING ABNORMAL [None]
  - HEADACHE [None]
  - PANIC ATTACK [None]
